FAERS Safety Report 25227811 (Version 1)
Quarter: 2025Q2

REPORT INFORMATION
  Report Type: Spontaneous
  Country: FR (occurrence: FR)
  Receive Date: 20250423
  Receipt Date: 20250423
  Transmission Date: 20250717
  Serious: Yes (Hospitalization, Other)
  Sender: ASTELLAS
  Company Number: None

PATIENT
  Age: 22 Year
  Sex: Male
  Weight: 63 kg

DRUGS (18)
  1. AMPHOTERICIN B [Suspect]
     Active Substance: AMPHOTERICIN B
     Indication: Bronchopulmonary aspergillosis
     Dosage: 450 MG, QD
     Route: 042
     Dates: start: 20250321, end: 20250325
  2. AMPHOTERICIN B [Suspect]
     Active Substance: AMPHOTERICIN B
     Dosage: 500 MG, QD
     Route: 042
     Dates: start: 20250325, end: 20250331
  3. CYCLOSPORINE [Suspect]
     Active Substance: CYCLOSPORINE
     Indication: Allogenic stem cell transplantation
     Dosage: 400 MG, QD
     Route: 048
     Dates: start: 20250226, end: 20250302
  4. CYCLOSPORINE [Suspect]
     Active Substance: CYCLOSPORINE
     Dosage: 450 MG, QD
     Route: 048
     Dates: start: 20250302, end: 20250308
  5. CYCLOSPORINE [Suspect]
     Active Substance: CYCLOSPORINE
     Dosage: 650 MG, QD
     Route: 048
     Dates: start: 20250308, end: 20250312
  6. CYCLOSPORINE [Suspect]
     Active Substance: CYCLOSPORINE
     Dosage: 600 MG, QD
     Route: 048
     Dates: start: 20250312, end: 20250322
  7. CYCLOSPORINE [Suspect]
     Active Substance: CYCLOSPORINE
     Dosage: 300 MG, QD
     Route: 048
     Dates: start: 20250322, end: 20250325
  8. CYCLOSPORINE [Suspect]
     Active Substance: CYCLOSPORINE
     Dosage: 150 MG, QD
     Route: 042
     Dates: start: 20250326
  9. MEROPENEM [Concomitant]
     Active Substance: MEROPENEM
     Indication: Febrile bone marrow aplasia
     Dosage: 2000MG 1-1-1
     Route: 042
     Dates: start: 20250325, end: 20250328
  10. PIPERACILLIN SODIUM\TAZOBACTAM SODIUM [Concomitant]
     Active Substance: PIPERACILLIN SODIUM\TAZOBACTAM SODIUM
     Indication: Febrile bone marrow aplasia
     Dosage: 4000MG*4/JOUR
     Route: 042
     Dates: start: 20250309, end: 20250323
  11. VANCOMYCIN [Concomitant]
     Active Substance: VANCOMYCIN
     Indication: Febrile bone marrow aplasia
     Dosage: 1220 MG
     Route: 042
     Dates: start: 20250320, end: 20250320
  12. VANCOMYCIN [Concomitant]
     Active Substance: VANCOMYCIN
     Dosage: 1830 MG
     Route: 042
     Dates: start: 20250320, end: 20250321
  13. VANCOMYCIN [Concomitant]
     Active Substance: VANCOMYCIN
     Dosage: 2250 MG
     Route: 042
     Dates: start: 20250321, end: 20250322
  14. VANCOMYCIN [Concomitant]
     Active Substance: VANCOMYCIN
     Dosage: 2700 MG
     Route: 042
     Dates: start: 20250322, end: 20250328
  15. ATOVAQUONE [Concomitant]
     Active Substance: ATOVAQUONE
     Indication: Antifungal prophylaxis
     Dosage: 750MG 1-0-1
     Route: 048
     Dates: start: 20250326
  16. ZOVIRAX [Concomitant]
     Active Substance: ACYCLOVIR
     Indication: Antiviral prophylaxis
     Dosage: 200MG*4/JOUR
     Route: 048
     Dates: start: 20250328, end: 20250331
  17. ZOVIRAX [Concomitant]
     Active Substance: ACYCLOVIR
     Dosage: 200MG*3/JOUR
     Route: 048
     Dates: start: 20250331
  18. OSELTAMIVIR PHOSPHATE [Concomitant]
     Active Substance: OSELTAMIVIR PHOSPHATE
     Indication: Influenza
     Dosage: 75MG*2/JOUR
     Route: 048
     Dates: start: 20250325

REACTIONS (1)
  - Renal tubular acidosis [Not Recovered/Not Resolved]

NARRATIVE: CASE EVENT DATE: 20250331
